FAERS Safety Report 12739783 (Version 1)
Quarter: 2016Q3

REPORT INFORMATION
  Report Type: Spontaneous
  Country: US (occurrence: US)
  Receive Date: 20160913
  Receipt Date: 20160913
  Transmission Date: 20161109
  Serious: No
  Sender: FDA-Public Use
  Company Number: US-INCYTE CORPORATION-2016IN005649

PATIENT
  Age: 79 Year
  Sex: Male

DRUGS (1)
  1. JAKAFI [Suspect]
     Active Substance: RUXOLITINIB
     Indication: POLYCYTHAEMIA VERA
     Dosage: 5 MG, DAILY
     Route: 048
     Dates: start: 20160214

REACTIONS (1)
  - Synovial rupture [Unknown]

NARRATIVE: CASE EVENT DATE: 20160824
